FAERS Safety Report 16709157 (Version 2)
Quarter: 2019Q3

REPORT INFORMATION
  Report Type: Spontaneous
  Country: US (occurrence: US)
  Receive Date: 20190816
  Receipt Date: 20190923
  Transmission Date: 20191004
  Serious: Yes (Other)
  Sender: FDA-Public Use
  Company Number: US-ROCHE-2372040

PATIENT
  Age: 80 Year
  Sex: Female
  Weight: 66.28 kg

DRUGS (2)
  1. KLONOPIN [Suspect]
     Active Substance: CLONAZEPAM
     Indication: ANXIETY
  2. KLONOPIN [Suspect]
     Active Substance: CLONAZEPAM
     Indication: PANIC ATTACK
     Dosage: ONGOING:YES
     Route: 048

REACTIONS (7)
  - Social avoidant behaviour [Unknown]
  - Loss of consciousness [Unknown]
  - Product physical issue [Unknown]
  - Aphasia [Unknown]
  - Therapeutic product effect decreased [Unknown]
  - Muscle spasms [Unknown]
  - Gait disturbance [Unknown]

NARRATIVE: CASE EVENT DATE: 20190728
